FAERS Safety Report 17444787 (Version 1)
Quarter: 2020Q1

REPORT INFORMATION
  Report Type: Spontaneous
  Country: US (occurrence: US)
  Receive Date: 20200221
  Receipt Date: 20200221
  Transmission Date: 20200409
  Serious: Yes (Hospitalization)
  Sender: FDA-Public Use
  Company Number: None

PATIENT
  Age: 82 Year
  Sex: Female
  Weight: 121 kg

DRUGS (22)
  1. LEVOTHYROXINE 175 MCG [Concomitant]
  2. ZOFRAN 8MG [Concomitant]
  3. METOPROLOL 50MG [Concomitant]
     Active Substance: METOPROLOL
  4. HYDROXYZINE 25MG [Concomitant]
  5. CLOPIDOGREL [Concomitant]
     Active Substance: CLOPIDOGREL BISULFATE
  6. DOXYCYCLINE 100MG [Concomitant]
     Active Substance: DOXYCYCLINE
     Dates: start: 20200211
  7. ALBUTEROL MDI [Concomitant]
     Active Substance: ALBUTEROL
  8. METFORMIN [Suspect]
     Active Substance: METFORMIN HYDROCHLORIDE
     Indication: TYPE 2 DIABETES MELLITUS
     Route: 048
  9. ROPINIROLE 4MG [Concomitant]
     Active Substance: ROPINIROLE
  10. ACETAMINOPHEN 650MG [Concomitant]
  11. RANITIDINE. [Concomitant]
     Active Substance: RANITIDINE
  12. PRAVASTATIN. [Concomitant]
     Active Substance: PRAVASTATIN
  13. POTASSIUM CHLORIDE 10 MEQ [Concomitant]
     Active Substance: POTASSIUM CHLORIDE
  14. OXYBUTYNIN 5MG [Concomitant]
     Active Substance: OXYBUTYNIN
  15. NITROGLYCERIN 0.4MG TAB [Concomitant]
  16. LISINOPRIL. [Concomitant]
     Active Substance: LISINOPRIL
  17. GABAPENTIN 100MG [Concomitant]
     Active Substance: GABAPENTIN
  18. TRAZODONE [Concomitant]
     Active Substance: TRAZODONE HYDROCHLORIDE
  19. NOVOLOG [Concomitant]
     Active Substance: INSULIN ASPART
  20. MIRTAZAPINE 15MG [Concomitant]
     Active Substance: MIRTAZAPINE
  21. OMEPRAZOLE 40MG [Concomitant]
     Active Substance: OMEPRAZOLE
  22. MAGNESIUM OXIDE 400MG [Concomitant]
     Active Substance: MAGNESIUM OXIDE

REACTIONS (3)
  - Hepatic enzyme increased [None]
  - Urinary tract infection [None]
  - Metabolic acidosis [None]

NARRATIVE: CASE EVENT DATE: 20200213
